FAERS Safety Report 8555514-X (Version None)
Quarter: 2012Q3

REPORT INFORMATION
  Report Type: 
  Country: None (occurrence: None)
  Receive Date: 20120731
  Receipt Date: 20111229
  Transmission Date: 20120928
  Serious: No
  Sender: FDA-Public Use
  Company Number: US-ASTRAZENECA-2011SE10690

PATIENT
  Age: 44 Year
  Sex: Female
  Weight: 77.1 kg

DRUGS (11)
  1. SEROQUEL XR [Suspect]
     Indication: BIPOLAR DISORDER
     Route: 048
     Dates: start: 20100101
  2. NOVOLOG [Concomitant]
     Dosage: 5 UNIT
  3. INSULIN [Concomitant]
  4. SEROQUEL XR [Suspect]
     Indication: ANXIETY
     Route: 048
     Dates: start: 20100101
  5. NOVOLOG [Concomitant]
     Dosage: 10 UNIT
  6. GLUCOPHAGE [Concomitant]
     Indication: TYPE 2 DIABETES MELLITUS
     Dosage: BID
  7. SEROQUEL XR [Suspect]
     Indication: DEPRESSION
     Route: 048
     Dates: start: 20100101
  8. METHADON HYDROCHLORIDE TAB [Concomitant]
  9. SEROQUEL XR [Suspect]
     Indication: SLEEP DISORDER
     Route: 048
     Dates: start: 20100101
  10. XANAX [Concomitant]
  11. HYDROCHLOROTHIAZIDE [Concomitant]
     Indication: FLUID RETENTION

REACTIONS (9)
  - HYPERTENSION [None]
  - DRUG DOSE OMISSION [None]
  - INSOMNIA [None]
  - SLEEP DISORDER [None]
  - MICROALBUMINURIA [None]
  - VERTIGO [None]
  - EAR PAIN [None]
  - FATIGUE [None]
  - OFF LABEL USE [None]
